FAERS Safety Report 11900069 (Version 1)
Quarter: 2016Q1

REPORT INFORMATION
  Report Type: Report from Study
  Country: US (occurrence: US)
  Receive Date: 20160108
  Receipt Date: 20160108
  Transmission Date: 20160526
  Serious: No
  Sender: FDA-Public Use
  Company Number: US-ABBVIE-15P-163-1449389-00

PATIENT
  Age: 58 Year
  Sex: Female

DRUGS (5)
  1. MODERIBA [Suspect]
     Active Substance: RIBAVIRIN
     Dosage: 400 AM 600 PM
     Route: 048
     Dates: start: 20150808
  2. ATENOLOL. [Concomitant]
     Active Substance: ATENOLOL
     Indication: PRODUCT USED FOR UNKNOWN INDICATION
  3. VIEKIRA PAK [Suspect]
     Active Substance: DASABUVIR\OMBITASVIR\PARITAPREVIR\RITONAVIR
     Indication: CHRONIC HEPATITIS C
     Route: 048
     Dates: start: 20150613
  4. EPINEPHRINE. [Suspect]
     Active Substance: EPINEPHRINE
     Indication: ARTHROPOD STING
     Route: 050
     Dates: start: 20150810, end: 20150810
  5. MODERIBA [Suspect]
     Active Substance: RIBAVIRIN
     Indication: CHRONIC HEPATITIS C
     Route: 048
     Dates: start: 20150613, end: 20150807

REACTIONS (3)
  - Ammonia increased [Unknown]
  - Tremor [Recovered/Resolved]
  - Arthropod sting [Recovered/Resolved]

NARRATIVE: CASE EVENT DATE: 20150807
